FAERS Safety Report 5250308-5 (Version None)
Quarter: 2007Q1

REPORT INFORMATION
  Report Type: 
  Country: None (occurrence: None)
  Receive Date: 20070228
  Receipt Date: 20060322
  Transmission Date: 20070707
  Serious: No
  Sender: FDA-Public Use
  Company Number: US-GLAXOSMITHKLINE-A0598627A

PATIENT
  Age: 64 Year
  Sex: Male

DRUGS (4)
  1. LAMICTAL [Suspect]
     Dosage: 300MG TWICE PER DAY
     Route: 048
     Dates: start: 20050101
  2. SONATA [Concomitant]
  3. NEURONTIN [Concomitant]
  4. UNKNOWN MEDICATION [Concomitant]

REACTIONS (1)
  - INSOMNIA [None]
